FAERS Safety Report 15852662 (Version 1)
Quarter: 2019Q1

REPORT INFORMATION
  Report Type: Spontaneous
  Country: US (occurrence: US)
  Receive Date: 20190118
  Receipt Date: 20190118
  Transmission Date: 20190417
  Serious: Yes (Hospitalization)
  Sender: FDA-Public Use
  Company Number: None

PATIENT
  Age: 70 Year
  Sex: Male
  Weight: 132.75 kg

DRUGS (19)
  1. NOVOLOG [Concomitant]
     Active Substance: INSULIN ASPART
  2. MULTIVITAMINS [Concomitant]
     Active Substance: VITAMINS
  3. BRIMONIDINE [Concomitant]
     Active Substance: BRIMONIDINE TARTRATE
  4. CAPECITABINE. [Suspect]
     Active Substance: CAPECITABINE
     Indication: PANCREATIC CARCINOMA
     Route: 048
     Dates: start: 20181109
  5. DUTASTERIDE. [Concomitant]
     Active Substance: DUTASTERIDE
  6. NORCO [Concomitant]
     Active Substance: ACETAMINOPHEN\HYDROCODONE BITARTRATE
  7. VITAMIN D [Concomitant]
     Active Substance: CHOLECALCIFEROL
  8. PROCHLORPERAZINE. [Concomitant]
     Active Substance: PROCHLORPERAZINE
  9. TRAVATAN [Concomitant]
     Active Substance: TRAVOPROST
  10. TERAZOSIN [Concomitant]
     Active Substance: TERAZOSIN\TERAZOSIN HYDROCHLORIDE
  11. LISINOPRIL. [Concomitant]
     Active Substance: LISINOPRIL
  12. EMLA [Concomitant]
     Active Substance: LIDOCAINE\PRILOCAINE
  13. ZYRTEC [Concomitant]
     Active Substance: CETIRIZINE HYDROCHLORIDE
  14. LANTUS [Concomitant]
     Active Substance: INSULIN GLARGINE
  15. AMLODIPINE [Concomitant]
     Active Substance: AMLODIPINE BESYLATE
  16. LEVOTHYROXINE. [Concomitant]
     Active Substance: LEVOTHYROXINE
  17. ONDANSETRON [Concomitant]
     Active Substance: ONDANSETRON
  18. LOSARTAN. [Concomitant]
     Active Substance: LOSARTAN
  19. VITAMIN B12 [Concomitant]
     Active Substance: CYANOCOBALAMIN

REACTIONS (1)
  - Disease progression [None]
